FAERS Safety Report 6272229-1 (Version None)
Quarter: 2009Q3

REPORT INFORMATION
  Report Type: 
  Country: None (occurrence: None)
  Receive Date: 20090717
  Receipt Date: 20090710
  Transmission Date: 20100115
  Serious: Yes (Hospitalization)
  Sender: FDA-Public Use
  Company Number: CH-JNJFOC-20090702933

PATIENT
  Age: 65 Year
  Sex: Female

DRUGS (2)
  1. IMODIUM [Suspect]
     Indication: DIARRHOEA
     Route: 048
  2. TIZANIDINE HCL [Suspect]
     Indication: BACK PAIN
     Route: 048

REACTIONS (5)
  - CONDITION AGGRAVATED [None]
  - CONFUSIONAL STATE [None]
  - ENCEPHALOPATHY [None]
  - FALL [None]
  - SOMNOLENCE [None]
